FAERS Safety Report 16345823 (Version 1)
Quarter: 2019Q2

REPORT INFORMATION
  Report Type: Report from Study
  Country: None (occurrence: TW)
  Receive Date: 20190523
  Receipt Date: 20190523
  Transmission Date: 20190711
  Serious: Yes (Hospitalization)
  Sender: FDA-Public Use
  Company Number: TW-ABBVIE-19K-153-2793593-00

PATIENT
  Age: 26 Year
  Sex: Female
  Weight: 63.3 kg

DRUGS (4)
  1. HUMIRA [Suspect]
     Active Substance: ADALIMUMAB
     Indication: CROHN^S DISEASE
     Route: 058
     Dates: start: 20190425
  2. FLOMOXEF [Concomitant]
     Active Substance: FLOMOXEF
     Indication: CROHN^S DISEASE
     Dates: start: 20190501, end: 20190505
  3. HUMIRA [Suspect]
     Active Substance: ADALIMUMAB
     Indication: CROHN^S DISEASE
     Route: 058
     Dates: start: 20130802, end: 20180412
  4. CEFIXIME. [Concomitant]
     Active Substance: CEFIXIME
     Indication: CROHN^S DISEASE
     Route: 048
     Dates: start: 20190505, end: 20190510

REACTIONS (3)
  - Cholelithiasis [Recovering/Resolving]
  - Hepatic steatosis [Recovering/Resolving]
  - Anal fistula [Recovering/Resolving]

NARRATIVE: CASE EVENT DATE: 20190501
